FAERS Safety Report 7406545-4 (Version None)
Quarter: 2011Q2

REPORT INFORMATION
  Report Type: 
  Country: None (occurrence: None)
  Receive Date: 20110411
  Receipt Date: 20110329
  Transmission Date: 20111010
  Serious: Yes (Death)
  Sender: FDA-Public Use
  Company Number: US-ELI_LILLY_AND_COMPANY-US201103006925

PATIENT
  Sex: Female
  Weight: 71.655 kg

DRUGS (3)
  1. FOLIC ACID [Concomitant]
     Dosage: 400 MG, QD
     Route: 048
     Dates: start: 20110201
  2. ALIMTA [Suspect]
     Indication: LUNG NEOPLASM MALIGNANT
     Dosage: 900 MG, UNK
     Route: 042
     Dates: start: 20110210
  3. VITAMIN B-12 [Concomitant]
     Route: 030

REACTIONS (1)
  - NEOPLASM MALIGNANT [None]
